FAERS Safety Report 12773079 (Version 1)
Quarter: 2016Q3

REPORT INFORMATION
  Report Type: Spontaneous
  Country: US (occurrence: US)
  Receive Date: 20160922
  Receipt Date: 20160922
  Transmission Date: 20161109
  Serious: No
  Sender: FDA-Public Use
  Company Number: US-BION-20160297

PATIENT
  Sex: Male

DRUGS (2)
  1. ZYRTEC [Suspect]
     Active Substance: CETIRIZINE HYDROCHLORIDE
     Indication: EXPOSURE TO TOXIC AGENT
     Dosage: 1 DSF IN THE MORNING
     Route: 048
     Dates: start: 20160712, end: 20160712
  2. PREDNISONE. [Concomitant]
     Active Substance: PREDNISONE
     Indication: INFECTION

REACTIONS (3)
  - Drug prescribing error [Unknown]
  - Drug ineffective for unapproved indication [Unknown]
  - Product use issue [Unknown]

NARRATIVE: CASE EVENT DATE: 20160712
